FAERS Safety Report 7581610-X (Version None)
Quarter: 2011Q2

REPORT INFORMATION
  Report Type: 
  Country: None (occurrence: None)
  Receive Date: 20110629
  Receipt Date: 20110628
  Transmission Date: 20111010
  Serious: Yes (Life-Threatening, Other)
  Sender: FDA-Public Use
  Company Number: PHHY2011IT56882

PATIENT
  Sex: Male

DRUGS (11)
  1. MEDROL [Concomitant]
     Dosage: 4 MG, UNK
     Route: 048
  2. DEXAMETHASONE SODIUM PHOSPHATE [Concomitant]
     Dosage: 8 MG, UNK
  3. CYCLOSPORINE [Suspect]
     Route: 048
  4. DURAGESIC-100 [Concomitant]
     Dosage: 50 UG, UNK
     Route: 062
  5. CYCLOSPORINE [Suspect]
     Dosage: 200 MG, DAILY
     Route: 048
     Dates: start: 20100601
  6. CUBICIN [Suspect]
     Indication: RELAPSING FEVER
     Dosage: 500 MG, DAILY
     Route: 042
     Dates: start: 20110610, end: 20110620
  7. ALLOPURINOL [Concomitant]
     Dosage: 150 MG, UNK
     Route: 048
  8. CELLCEPT [Concomitant]
     Dosage: 1 G, UNK
     Route: 048
  9. ESOPRAL [Concomitant]
     Dosage: 20 MG, UNK
     Route: 048
  10. PANTOPRAZOLE SODIUM [Concomitant]
     Dosage: 1 DF, UNK
     Route: 042
  11. LASIX [Concomitant]
     Dosage: 25 MG, UNK
     Route: 048

REACTIONS (9)
  - ASPARTATE AMINOTRANSFERASE INCREASED [None]
  - TRANSAMINASES INCREASED [None]
  - MYOGLOBIN BLOOD INCREASED [None]
  - BLOOD CREATINE PHOSPHOKINASE INCREASED [None]
  - MYALGIA [None]
  - DYSPNOEA [None]
  - HYPERCREATININAEMIA [None]
  - ALANINE AMINOTRANSFERASE INCREASED [None]
  - AZOTAEMIA [None]
